FAERS Safety Report 4890933-4 (Version None)
Quarter: 2006Q1

REPORT INFORMATION
  Report Type: 
  Country: None (occurrence: None)
  Receive Date: 20060125
  Receipt Date: 20060113
  Transmission Date: 20060701
  Serious: Yes (Death)
  Sender: FDA-Public Use
  Company Number: JP-BRISTOL-MYERS SQUIBB COMPANY-13246236

PATIENT
  Age: 81 Year
  Sex: Female

DRUGS (2)
  1. MAXIPIME [Suspect]
     Indication: FEBRILE NEUTROPENIA
     Dosage: THERAPY INITIATED ON 15-AUG-2005 AT 2G/DAY, INCREASED TO 2G TWICE DAILY ON 16-AUG-2005.
     Dates: start: 20050815, end: 20050821
  2. GRAN [Concomitant]
     Dates: start: 20050816, end: 20050821

REACTIONS (1)
  - ADULT T-CELL LYMPHOMA/LEUKAEMIA [None]
